FAERS Safety Report 9108222 (Version 1)
Quarter: 2013Q1

REPORT INFORMATION
  Report Type: Spontaneous
  Country: JP (occurrence: JP)
  Receive Date: 20130222
  Receipt Date: 20130222
  Transmission Date: 20140127
  Serious: Yes (Hospitalization)
  Sender: FDA-Public Use
  Company Number: JP-AMGEN-JPNSP2013011333

PATIENT
  Age: 69 Year
  Sex: Male
  Weight: 58 kg

DRUGS (10)
  1. RANMARK [Suspect]
     Indication: METASTASES TO BONE
     Route: 058
     Dates: start: 20130108
  2. NEW CALCICHEW D3 [Concomitant]
     Dosage: UNKNOWN
     Route: 065
  3. PARIET [Concomitant]
     Route: 065
  4. MUCOSTA [Concomitant]
     Route: 065
  5. NOVAMIN [Concomitant]
     Route: 065
  6. MAGMITT [Concomitant]
     Route: 065
  7. CELECOX [Concomitant]
     Route: 065
  8. OXYCONTIN [Concomitant]
     Route: 065
  9. OXINORM [Concomitant]
     Route: 065
  10. PURSENNID [Concomitant]
     Route: 065

REACTIONS (2)
  - Hyperkalaemia [Recovered/Resolved]
  - Hypocalcaemia [Recovered/Resolved]
